FAERS Safety Report 23403014 (Version 1)
Quarter: 2024Q1

REPORT INFORMATION
  Report Type: Spontaneous
  Country: US (occurrence: US)
  Receive Date: 20240115
  Receipt Date: 20240115
  Transmission Date: 20240410
  Serious: No
  Sender: FDA-Public Use
  Company Number: US-AMGEN-USASP2024007794

PATIENT

DRUGS (10)
  1. TRASTUZUMAB [Suspect]
     Active Substance: TRASTUZUMAB
     Indication: Hormone receptor negative HER2 positive breast cancer
     Dosage: 80 MILLIGRAM, 2XQWK (CYCLE 1)
     Route: 029
  2. TRASTUZUMAB [Suspect]
     Active Substance: TRASTUZUMAB
     Indication: HER2 positive breast cancer
     Dosage: 80 MILLIGRAM, QWK (CYCLE 2)
     Route: 029
  3. TRASTUZUMAB [Suspect]
     Active Substance: TRASTUZUMAB
     Indication: Metastases to meninges
     Dosage: 80 MILLIGRAM, Q2WK
     Route: 029
  4. PERTUZUMAB [Suspect]
     Active Substance: PERTUZUMAB
     Indication: Hormone receptor negative HER2 positive breast cancer
     Dosage: UNK, 2XQWK (CYCLE 1)
     Route: 029
  5. PERTUZUMAB [Suspect]
     Active Substance: PERTUZUMAB
     Indication: HER2 positive breast cancer
     Dosage: UNK, QWK (CYCLE 2)
     Route: 029
  6. PERTUZUMAB [Suspect]
     Active Substance: PERTUZUMAB
     Indication: Metastases to meninges
     Dosage: UNK, Q2WK
     Route: 029
  7. PERTUZUMAB [Suspect]
     Active Substance: PERTUZUMAB
     Dosage: 10 MILLIGRAM
     Route: 029
  8. PERTUZUMAB [Suspect]
     Active Substance: PERTUZUMAB
     Dosage: 20 MILLIGRAM
     Route: 029
  9. PERTUZUMAB [Suspect]
     Active Substance: PERTUZUMAB
     Dosage: 40 MILLIGRAM
     Route: 029
  10. PERTUZUMAB [Suspect]
     Active Substance: PERTUZUMAB
     Dosage: 80 MILLIGRAM
     Route: 029

REACTIONS (6)
  - Therapy partial responder [Unknown]
  - Pain in extremity [Unknown]
  - Fatigue [Unknown]
  - Headache [Unknown]
  - Off label use [Unknown]
  - Medical device site infection [Unknown]
